FAERS Safety Report 13477672 (Version 1)
Quarter: 2017Q2

REPORT INFORMATION
  Report Type: Spontaneous
  Country: NL (occurrence: NL)
  Receive Date: 20170425
  Receipt Date: 20170425
  Transmission Date: 20170830
  Serious: Yes (Other)
  Sender: FDA-Public Use
  Company Number: NL-CELLTRION INC.-2017NL004793

PATIENT

DRUGS (2)
  1. INFLIXIMAB HOSPIRA [Suspect]
     Active Substance: INFLIXIMAB
     Indication: MULTIPLE SCLEROSIS
     Dosage: 10 MG/KG,  (INTERVAL OF 2 WEEKS)
     Route: 041
  2. SALINE                             /00075401/ [Concomitant]
     Active Substance: SODIUM CHLORIDE
     Dosage: DILUTED TO 300 ML

REACTIONS (1)
  - Systemic immune activation [Recovered/Resolved]
